FAERS Safety Report 12702944 (Version 6)
Quarter: 2016Q4

REPORT INFORMATION
  Report Type: Spontaneous
  Country: GB (occurrence: GB)
  Receive Date: 20160831
  Receipt Date: 20161123
  Transmission Date: 20170207
  Serious: Yes (Other)
  Sender: FDA-Public Use
  Company Number: GB-REGENERON PHARMACEUTICALS, INC.-2016-21069

PATIENT

DRUGS (2)
  1. EYLEA [Suspect]
     Active Substance: AFLIBERCEPT
     Indication: NEOVASCULAR AGE-RELATED MACULAR DEGENERATION
     Dosage: 0.05 ML, ONCE
     Route: 031
     Dates: start: 20160803, end: 20160803
  2. EYLEA [Suspect]
     Active Substance: AFLIBERCEPT
     Dosage: RECEIVED A TOTAL OF 7 INJECTIONS BY THE TIME OF AE

REACTIONS (3)
  - Multiple use of single-use product [Recovering/Resolving]
  - Vitritis [Recovering/Resolving]
  - Blindness [Unknown]

NARRATIVE: CASE EVENT DATE: 201608
